FAERS Safety Report 13367776 (Version 2)
Quarter: 2017Q2

REPORT INFORMATION
  Report Type: Spontaneous
  Country: IL (occurrence: IL)
  Receive Date: 20170324
  Receipt Date: 20170421
  Transmission Date: 20170830
  Serious: Yes (Death, Hospitalization, Other)
  Sender: FDA-Public Use
  Company Number: IL-ROCHE-1909681

PATIENT
  Age: 63 Year
  Sex: Female

DRUGS (3)
  1. VISTOGARD [Suspect]
     Active Substance: URIDINE TRIACETATE
     Indication: CHEMOTHERAPY TOXICITY ATTENUATION
     Route: 050
     Dates: start: 20170317, end: 20170322
  2. CISPLATIN. [Suspect]
     Active Substance: CISPLATIN
     Indication: GASTRIC CANCER
     Route: 042
     Dates: start: 20170302, end: 20170302
  3. XELODA [Suspect]
     Active Substance: CAPECITABINE
     Indication: GASTRIC CANCER
     Dosage: 200MG IN THE MORNING AND 1500 MG IN THE EVENING, IN TOTAL 7 TABLETS OF 500 MG?LAST DOSE OF CAPECITAB
     Route: 048
     Dates: start: 20170302, end: 20170314

REACTIONS (9)
  - Diarrhoea [Unknown]
  - Nausea [Unknown]
  - Bone marrow failure [Fatal]
  - Thrombocytopenia [Unknown]
  - Multiple organ dysfunction syndrome [Unknown]
  - Shock [Unknown]
  - Vomiting [Unknown]
  - Toxicity to various agents [Fatal]
  - Neutropenia [Unknown]

NARRATIVE: CASE EVENT DATE: 20170313
